FAERS Safety Report 13306035 (Version 2)
Quarter: 2017Q3

REPORT INFORMATION
  Report Type: Report from Study
  Country: CA (occurrence: CA)
  Receive Date: 20170308
  Receipt Date: 20170725
  Transmission Date: 20171127
  Serious: Yes (Other)
  Sender: FDA-Public Use
  Company Number: CA-IPSEN BIOPHARMACEUTICALS, INC.-2017-01767

PATIENT
  Age: 54 Year
  Sex: Female
  Weight: 74.85 kg

DRUGS (18)
  1. QUETIAPINE XR [Concomitant]
     Active Substance: QUETIAPINE
     Dosage: ONE IN THE MORNING, ONE BEFORE SLEEP
  2. SOMATULINE AUTOGEL 120MG [Suspect]
     Active Substance: LANREOTIDE ACETATE
     Dosage: 120 MG
     Route: 058
     Dates: start: 20170719
  3. SOMATULINE AUTOGEL 120MG [Suspect]
     Active Substance: LANREOTIDE ACETATE
     Indication: NEUROENDOCRINE TUMOUR
     Dosage: 240 MG
     Route: 058
     Dates: start: 20160706, end: 20170719
  4. PMS PREGABALIN [Concomitant]
  5. PMS PREGABALIN [Concomitant]
     Dosage: ONE IN THE MORNING, ONE BEFORE SLEEP
  6. JAMP PANTOPRAZOLE [Concomitant]
     Dosage: ONE IN THE MORNING
  7. JAMP SULFATE FERREUX [Concomitant]
     Dosage: ONE IN THE MORNING
  8. HYDROMORPH CONTIN [Concomitant]
     Active Substance: HYDROMORPHONE
     Dosage: ONE IN THE MORNING, ONE BEFORE DINNER, ONE BEFORE SLEEP
  9. JAMP DOMPERIDONE [Concomitant]
     Dosage: ONE IN THE MORNING, ONE AT MIDDAY, ONE BEFORE DINNER
  10. PMS-METFORMIN [Concomitant]
     Dosage: ONE HALF IN THE MORNING, ONE HALF BEFORE DINNER
  11. RESTORIL [Concomitant]
     Active Substance: TEMAZEPAM
     Dosage: ONE BEFORE SLEEP
  12. SANDOZ BUPROPION SR [Concomitant]
     Active Substance: BUPROPION
     Dosage: ONE IN THE MORNING, ONE AT DINNER
  13. JAMP VITAMIN D [Concomitant]
  14. PMS-TRAZODONE [Concomitant]
  15. PMS VENLAFAXINE XR [Concomitant]
     Dosage: ONE IN THE MORNING, ONE AT DINNER
  16. TEVA-CLONIDINE [Concomitant]
     Dosage: TWO IN THE MORNING, ONE AT MIDDAY, TWO BEFORE SLEEP
  17. HYDROMORPH CONTIN [Concomitant]
     Active Substance: HYDROMORPHONE
     Dosage: ONE IN THE MORNING, ONE BEFORE DINNER, ONE BEFORE SLEEP
  18. QUETIAPINE XR [Concomitant]
     Active Substance: QUETIAPINE
     Dosage: ONE BEFORE SLEEP

REACTIONS (7)
  - Metastases to stomach [Not Recovered/Not Resolved]
  - Metastases to liver [Not Recovered/Not Resolved]
  - Gastrooesophageal reflux disease [Not Recovered/Not Resolved]
  - Metastasis [Not Recovered/Not Resolved]
  - Incorrect dose administered [Unknown]
  - Liver function test abnormal [Not Recovered/Not Resolved]
  - Inappropriate schedule of drug administration [Unknown]

NARRATIVE: CASE EVENT DATE: 20170221
